FAERS Safety Report 8838202 (Version 1)
Quarter: 2012Q4

REPORT INFORMATION
  Report Type: 
  Country: US (occurrence: US)
  Receive Date: 20121012
  Receipt Date: 20121012
  Transmission Date: 20130627
  Serious: Yes (Death, Other)
  Sender: FDA-Public Use
  Company Number: US-ROCHE-1110976

PATIENT
  Sex: Male

DRUGS (5)
  1. NUTROPIN [Suspect]
     Indication: CHONDRODYSTROPHY
  2. NUTROPIN [Suspect]
     Indication: ENCHONDROMATOSIS
  3. NUTROPIN [Suspect]
     Indication: ENCHONDROMATOSIS
  4. NUTROPIN [Suspect]
     Indication: ENCHONDROMATOSIS
  5. NUTROPIN [Suspect]
     Indication: CHONDRODYSTROPHY

REACTIONS (2)
  - Death [Fatal]
  - Malnutrition [Unknown]
